FAERS Safety Report 17505645 (Version 1)
Quarter: 2020Q1

REPORT INFORMATION
  Report Type: Spontaneous
  Country: US (occurrence: US)
  Receive Date: 20200306
  Receipt Date: 20200306
  Transmission Date: 20200409
  Serious: Yes (Death, Other)
  Sender: FDA-Public Use
  Company Number: US-AMGEN-USASP2020036339

PATIENT
  Age: 51 Year
  Sex: Male

DRUGS (3)
  1. PEMIGATINIB [Concomitant]
     Active Substance: PEMIGATINIB
     Indication: ACUTE MYELOID LEUKAEMIA
  2. FILGRASTIM [Suspect]
     Active Substance: FILGRASTIM
     Indication: ACUTE MYELOID LEUKAEMIA
     Route: 065
  3. BLINATUMOMAB [Suspect]
     Active Substance: BLINATUMOMAB
     Indication: ACUTE LYMPHOCYTIC LEUKAEMIA
     Route: 065

REACTIONS (3)
  - Transformation to acute myeloid leukaemia [Fatal]
  - Acute lymphocytic leukaemia recurrent [Fatal]
  - Drug ineffective [Unknown]
